FAERS Safety Report 12334393 (Version 1)
Quarter: 2016Q2

REPORT INFORMATION
  Report Type: Report from Study
  Country: BR (occurrence: BR)
  Receive Date: 20160504
  Receipt Date: 20160504
  Transmission Date: 20160815
  Serious: Yes (Other)
  Sender: FDA-Public Use
  Company Number: PHHY2016BR059723

PATIENT
  Age: 73 Year
  Sex: Female
  Weight: 70 kg

DRUGS (6)
  1. CATAFLAM [Suspect]
     Active Substance: DICLOFENAC POTASSIUM
     Indication: PAIN IN EXTREMITY
     Dosage: 11.6 MG, PRN (AS NEEDED)
     Route: 058
  2. DIOVAN [Suspect]
     Active Substance: VALSARTAN
     Indication: HYPERTENSION
     Dosage: 160 MG, BID
     Route: 065
  3. DIOVAN [Suspect]
     Active Substance: VALSARTAN
     Dosage: 80 MG, BID (SOME DAYS)
     Route: 048
  4. CATAFLAM [Suspect]
     Active Substance: DICLOFENAC POTASSIUM
     Indication: BACK PAIN
  5. CATAFLAM [Suspect]
     Active Substance: DICLOFENAC POTASSIUM
     Indication: MYALGIA
  6. DIOVAN AMLO FIX [Suspect]
     Active Substance: AMLODIPINE\VALSARTAN
     Indication: HYPERTENSION
     Dosage: 1 DF (AMLODIPINE160 MG, VALSARTAN 5 MG) ,BID
     Route: 048

REACTIONS (10)
  - Myocardial infarction [Recovered/Resolved]
  - Hypotension [Unknown]
  - Throat irritation [Unknown]
  - Pain [Unknown]
  - Blood pressure increased [Unknown]
  - Drug intolerance [Unknown]
  - Nasopharyngitis [Unknown]
  - Blood pressure fluctuation [Recovering/Resolving]
  - Drug ineffective [Unknown]
  - Oropharyngeal pain [Unknown]

NARRATIVE: CASE EVENT DATE: 20151001
